FAERS Safety Report 9601793 (Version 1)
Quarter: 2013Q4

REPORT INFORMATION
  Report Type: Spontaneous
  Country: US (occurrence: None)
  Receive Date: 20131004
  Receipt Date: 20131004
  Transmission Date: 20140711
  Serious: Yes (Other)
  Sender: FDA-Public Use
  Company Number: None

PATIENT
  Age: 40 Year
  Sex: Female
  Weight: 64.86 kg

DRUGS (5)
  1. AMLODIPINE [Suspect]
     Indication: BLOOD PRESSURE
     Dates: start: 20110802
  2. LOVASTATIN [Concomitant]
  3. LISINOPRIL [Concomitant]
  4. AMLODIPINE [Concomitant]
  5. METFORMIN [Concomitant]

REACTIONS (1)
  - Trichorrhexis [None]
